FAERS Safety Report 5635767-8 (Version None)
Quarter: 2008Q1

REPORT INFORMATION
  Report Type: 
  Country: None (occurrence: None)
  Receive Date: 20080220
  Receipt Date: 20080218
  Transmission Date: 20080703
  Serious: Yes (Hospitalization)
  Sender: FDA-Public Use
  Company Number: TCI2008A00352

PATIENT
  Age: 46 Year
  Sex: Female

DRUGS (2)
  1. LANSAP 400 (LANSOPRAZOLE, CLARITHROMYCIN, AMOXICILLIN) (PREPARATION FO [Suspect]
     Indication: HELICOBACTER INFECTION
     Dosage: 1 CARD (0.5 CARD, 2 IN 1 D); ORAL
     Route: 048
     Dates: start: 20080116, end: 20080123
  2. PREDNISOLONE [Suspect]
     Indication: RASH PAPULAR
     Dosage: 25 MG (25 MG 1 D); PER ORAL
     Route: 048
     Dates: start: 20080124

REACTIONS (4)
  - HEADACHE [None]
  - INTRACRANIAL VENOUS SINUS THROMBOSIS [None]
  - RASH PAPULAR [None]
  - VOMITING [None]
